FAERS Safety Report 15640673 (Version 4)
Quarter: 2019Q2

REPORT INFORMATION
  Report Type: Report from Study
  Country: US (occurrence: US)
  Receive Date: 20181120
  Receipt Date: 20190405
  Transmission Date: 20190711
  Serious: Yes (Other)
  Sender: FDA-Public Use
  Company Number: US-SA-2018SA314794

PATIENT
  Age: 34 Year
  Sex: Female

DRUGS (2)
  1. ALGLUCOSIDASE ALFA [Suspect]
     Active Substance: ALGLUCOSIDASE ALFA
     Indication: GLYCOGEN STORAGE DISEASE TYPE II
     Dosage: UNK, Q2 FREQUENCY
     Route: 041
     Dates: start: 20081219
  2. ALGLUCOSIDASE ALFA [Suspect]
     Active Substance: ALGLUCOSIDASE ALFA
     Dosage: UNK, NOT OCCURRING EVERY TWO WEEKS

REACTIONS (14)
  - Swelling [Not Recovered/Not Resolved]
  - Asthenia [Unknown]
  - Migraine [Unknown]
  - Visual impairment [Unknown]
  - Fatigue [Unknown]
  - Malaise [Unknown]
  - Gait disturbance [Unknown]
  - Dysstasia [Unknown]
  - Lyme disease [Not Recovered/Not Resolved]
  - Muscle twitching [Not Recovered/Not Resolved]
  - Fatigue [Not Recovered/Not Resolved]
  - Loss of personal independence in daily activities [Unknown]
  - Musculoskeletal chest pain [Unknown]
  - Inappropriate schedule of product administration [Unknown]
